FAERS Safety Report 4506024-8 (Version None)
Quarter: 2004Q4

REPORT INFORMATION
  Report Type: 
  Country: None (occurrence: None)
  Receive Date: 20041025
  Receipt Date: 20031111
  Transmission Date: 20050328
  Serious: Yes (Other)
  Sender: FDA-Public Use
  Company Number: US-JNJFOC-20030707321

PATIENT

DRUGS (8)
  1. REMICADE [Suspect]
     Indication: RHEUMATOID ARTHRITIS
     Dosage: 400 MG, INTRAVENOUS
     Route: 042
     Dates: start: 20001001
  2. METHOTREXATE [Concomitant]
  3. PREDNISONE [Concomitant]
  4. FOLIC ACID (FOLIC ACID) TABLETS [Concomitant]
  5. ASPIRIN [Concomitant]
  6. BENECOL (ALL OTHER THERAPEUTIC PRODUCTS) UNSPECIFIED [Concomitant]
  7. DARVOCET (PROPACET) TABLETS [Concomitant]
  8. UROCIT (POTASSIUM CITRATE) [Concomitant]

REACTIONS (1)
  - BASAL CELL CARCINOMA [None]
